FAERS Safety Report 16051539 (Version 2)
Quarter: 2019Q2

REPORT INFORMATION
  Report Type: Spontaneous
  Country: US (occurrence: US)
  Receive Date: 20190308
  Receipt Date: 20190404
  Transmission Date: 20190711
  Serious: Yes (Hospitalization)
  Sender: FDA-Public Use
  Company Number: US-VERTEX PHARMACEUTICALS-2019-001861

PATIENT
  Age: 6 Year
  Sex: Male

DRUGS (9)
  1. ORKAMBI [Suspect]
     Active Substance: IVACAFTOR\LUMACAFTOR
     Indication: CYSTIC FIBROSIS
     Dosage: 100/125 MG TABLETS, BID
     Route: 048
     Dates: start: 20180627
  2. PROAIR HFA [Concomitant]
     Active Substance: ALBUTEROL SULFATE
  3. CREON [Concomitant]
     Active Substance: PANCRELIPASE AMYLASE\PANCRELIPASE LIPASE\PANCRELIPASE PROTEASE
  4. PULMOZYME [Concomitant]
     Active Substance: DORNASE ALFA
  5. RANITIDINE. [Concomitant]
     Active Substance: RANITIDINE
  6. PREVACID [Concomitant]
     Active Substance: LANSOPRAZOLE
  7. HYPERSAL [Concomitant]
  8. QVAR [Concomitant]
     Active Substance: BECLOMETHASONE DIPROPIONATE
  9. CULTURELLE [Concomitant]
     Active Substance: LACTOBACILLUS RHAMNOSUS

REACTIONS (2)
  - Lung disorder [Recovering/Resolving]
  - Influenza [Recovering/Resolving]

NARRATIVE: CASE EVENT DATE: 201902
